FAERS Safety Report 16789874 (Version 1)
Quarter: 2019Q3

REPORT INFORMATION
  Report Type: Spontaneous
  Country: US (occurrence: US)
  Receive Date: 20190718
  Receipt Date: 20190718
  Transmission Date: 20191005
  Serious: Yes (Hospitalization)
  Sender: FDA-Public Use
  Company Number: None

PATIENT
  Age: 74 Year
  Sex: Female
  Weight: 63.5 kg

DRUGS (3)
  1. IFOSFAMIDE. [Suspect]
     Active Substance: IFOSFAMIDE
     Dates: end: 20130517
  2. NEULASTA [Suspect]
     Active Substance: PEGFILGRASTIM
     Dates: end: 20130520
  3. TAXOL [Suspect]
     Active Substance: PACLITAXEL
     Dates: end: 20130513

REACTIONS (16)
  - Vomiting [None]
  - Hyponatraemia [None]
  - Lethargy [None]
  - Fall [None]
  - Agitation [None]
  - Normochromic normocytic anaemia [None]
  - Diarrhoea [None]
  - Hypokalaemia [None]
  - Tachycardia [None]
  - Hallucination [None]
  - Nausea [None]
  - Klebsiella test positive [None]
  - Mental status changes [None]
  - Contusion [None]
  - Urinary tract infection [None]
  - Aggression [None]

NARRATIVE: CASE EVENT DATE: 20130613
